FAERS Safety Report 6264780-5 (Version None)
Quarter: 2009Q3

REPORT INFORMATION
  Report Type: 
  Country: None (occurrence: None)
  Receive Date: 20090710
  Receipt Date: 20090708
  Transmission Date: 20100115
  Serious: Yes (Hospitalization)
  Sender: FDA-Public Use
  Company Number: US-BRISTOL-MYERS SQUIBB COMPANY-14676720

PATIENT
  Age: 68 Year
  Sex: Male
  Weight: 57 kg

DRUGS (4)
  1. ERBITUX [Suspect]
     Indication: OESOPHAGEAL SQUAMOUS CELL CARCINOMA
     Dosage: INITIATED ON 26MAY09 400MG/M2:DAY 1 250MG/M2:DAY 8,15,22,29,36 LAST REC'D ON 16JUN09
     Route: 042
     Dates: start: 20090526, end: 20090526
  2. PACLITAXEL [Suspect]
     Indication: OESOPHAGEAL SQUAMOUS CELL CARCINOMA
     Dosage: INITIAL:26MAY09 IV 5OMG/M2 DAY 1,8,15,22,29,36
     Route: 042
     Dates: start: 20090526, end: 20090526
  3. CISPLATIN [Suspect]
     Indication: OESOPHAGEAL SQUAMOUS CELL CARCINOMA
     Dosage: INI: 26MAY09 IV 25MG/M2 DAY 1,8,15,22,29,36
     Route: 042
     Dates: start: 20090526, end: 20090526
  4. RADIATION THERAPY [Suspect]
     Indication: OESOPHAGEAL SQUAMOUS CELL CARCINOMA
     Dosage: 1DF=3686GY(TO DATE):FRAC-19:LASTRC'D:22JUN09:50.4GY,AT 180CGY/FX D1-5,8-12,15-19,22-26,29-33,36-38
     Dates: start: 20090526, end: 20090526

REACTIONS (7)
  - BACK PAIN [None]
  - DEHYDRATION [None]
  - FATIGUE [None]
  - HYPOKALAEMIA [None]
  - NAUSEA [None]
  - OESOPHAGEAL PAIN [None]
  - WEIGHT DECREASED [None]
